FAERS Safety Report 12644826 (Version 4)
Quarter: 2016Q3

REPORT INFORMATION
  Report Type: Spontaneous
  Country: US (occurrence: US)
  Receive Date: 20160811
  Receipt Date: 20160930
  Transmission Date: 20161109
  Serious: Yes (Other)
  Sender: FDA-Public Use
  Company Number: US-PFIZER INC-2016359816

PATIENT
  Age: 59 Year
  Sex: Female
  Weight: 94.34 kg

DRUGS (9)
  1. METOPROLOL. [Concomitant]
     Active Substance: METOPROLOL
     Dosage: UNK
  2. ALDACTONE [Concomitant]
     Active Substance: SPIRONOLACTONE
     Dosage: UNK
  3. POTASSIUM [Concomitant]
     Active Substance: POTASSIUM
     Dosage: UNK
  4. MYLANTA [Concomitant]
     Active Substance: ALUMINUM HYDROXIDE\DIMETHICONE\MAGNESIUM HYDROXIDE
     Dosage: UNK
  5. AMLODIPINE [Concomitant]
     Active Substance: AMLODIPINE BESYLATE
     Dosage: UNK
  6. SUTENT [Suspect]
     Active Substance: SUNITINIB MALATE
     Indication: CARCINOID TUMOUR OF THE PANCREAS
     Dosage: 37.5 MG, CYCLIC (28 DAYS ON/14 DAYS OFF, EVERY OTHER DAY)
     Dates: start: 20160721
  7. HYDROCODONE BITARTRATE AND ACETAMINOPHEN [Concomitant]
     Active Substance: ACETAMINOPHEN\HYDROCODONE BITARTRATE
     Dosage: UNK
  8. VASOTEC [Concomitant]
     Active Substance: ENALAPRIL MALEATE
     Dosage: UNK
  9. LASIX [Concomitant]
     Active Substance: FUROSEMIDE
     Dosage: UNK

REACTIONS (25)
  - Diarrhoea [Unknown]
  - Swelling [Unknown]
  - Ageusia [Unknown]
  - Cardiac disorder [Unknown]
  - Ascites [Unknown]
  - Abnormal behaviour [Unknown]
  - Product use issue [Unknown]
  - Injection site extravasation [Unknown]
  - Weight increased [Unknown]
  - Rash [Unknown]
  - Asthenia [Unknown]
  - Paraesthesia [Unknown]
  - Back pain [Unknown]
  - Peripheral swelling [Recovering/Resolving]
  - Thrombosis [Recovered/Resolved]
  - Stomatitis [Recovered/Resolved]
  - Contusion [Unknown]
  - Increased appetite [Unknown]
  - Decreased appetite [Unknown]
  - Dyspnoea [Unknown]
  - Fatigue [Unknown]
  - Limb discomfort [Unknown]
  - Pruritus [Unknown]
  - Abdominal pain upper [Unknown]
  - Erythema [Unknown]

NARRATIVE: CASE EVENT DATE: 2016
